FAERS Safety Report 9289037 (Version 1)
Quarter: 2013Q2

REPORT INFORMATION
  Report Type: Spontaneous
  Country: US (occurrence: US)
  Receive Date: 20130514
  Receipt Date: 20130514
  Transmission Date: 20140414
  Serious: Yes (Other)
  Sender: FDA-Public Use
  Company Number: US-PFIZER INC-2013146813

PATIENT
  Age: 46 Year
  Sex: Female

DRUGS (1)
  1. EFFEXOR XR [Suspect]
     Indication: DEPRESSION
     Dosage: 150 MG, 2X/DAY
     Dates: end: 201302

REACTIONS (5)
  - Inappropriate schedule of drug administration [Unknown]
  - Suicidal ideation [Unknown]
  - Depression [Unknown]
  - Anger [Unknown]
  - Off label use [Unknown]
